FAERS Safety Report 5298418-0 (Version None)
Quarter: 2007Q2

REPORT INFORMATION
  Report Type: 
  Country: None (occurrence: None)
  Receive Date: 20070409
  Receipt Date: 20070321
  Transmission Date: 20071010
  Serious: Yes (Hospitalization)
  Sender: FDA-Public Use
  Company Number: SP01177

PATIENT
  Age: 50 Year
  Sex: Female

DRUGS (1)
  1. OSMOPREP [Suspect]
     Indication: COLONOSCOPY
     Dosage: 32 TABLET STANDARD DOSING, ORAL
     Route: 048
     Dates: start: 20070301, end: 20070301

REACTIONS (1)
  - RENAL FAILURE ACUTE [None]
